FAERS Safety Report 11617591 (Version 14)
Quarter: 2019Q4

REPORT INFORMATION
  Report Type: Spontaneous
  Country: JP (occurrence: JP)
  Receive Date: 20151009
  Receipt Date: 20191221
  Transmission Date: 20200122
  Serious: Yes (Hospitalization)
  Sender: FDA-Public Use
  Company Number: JP-UNITED THERAPEUTICS-UNT-2015-006063

PATIENT
  Age: 51 Year
  Sex: Female
  Weight: 38 kg

DRUGS (33)
  1. REMODULIN [Suspect]
     Active Substance: TREPROSTINIL
     Indication: ATRIAL SEPTAL DEFECT REPAIR
     Dosage: 0.0075 ?G/KG, CONTINUING
     Route: 058
     Dates: start: 20150513
  2. REMODULIN [Suspect]
     Active Substance: TREPROSTINIL
     Dosage: 0.0135 ?G/KG/MIN, CONTINUING
     Route: 058
  3. REMODULIN [Suspect]
     Active Substance: TREPROSTINIL
     Dosage: 0.025 ?G/KG, CONTINUING
     Route: 058
  4. AMLODIPINE [Concomitant]
     Active Substance: AMLODIPINE BESYLATE
     Indication: HYPERTENSION
     Dosage: UNK
     Route: 048
     Dates: start: 20140922
  5. FAMOTIDINE. [Concomitant]
     Active Substance: FAMOTIDINE
     Indication: GASTROOESOPHAGEAL REFLUX DISEASE
     Dosage: UNK
     Route: 048
  6. REMODULIN [Suspect]
     Active Substance: TREPROSTINIL
     Dosage: 0.180 ?G/KG, CONTINUING
     Route: 058
  7. REMODULIN [Suspect]
     Active Substance: TREPROSTINIL
     Dosage: 0.90 ?G/KG, CONTINUING
     Route: 058
     Dates: end: 20191107
  8. BERAPROST NA [Concomitant]
     Active Substance: BERAPROST SODIUM
     Indication: PULMONARY ARTERIAL HYPERTENSION
     Dosage: UNK
     Route: 048
     Dates: start: 20140620, end: 201505
  9. VOLIBRIS [Concomitant]
     Active Substance: AMBRISENTAN
     Indication: PULMONARY ARTERIAL HYPERTENSION
     Dosage: UNK
     Route: 048
     Dates: start: 20140414
  10. ADCIRCA [Concomitant]
     Active Substance: TADALAFIL
     Indication: PULMONARY ARTERIAL HYPERTENSION
     Dosage: UNK
     Route: 048
     Dates: start: 20140414
  11. LIPIDIL [Concomitant]
     Active Substance: FENOFIBRATE
     Indication: HYPERLIPIDAEMIA
     Dosage: UNK
     Route: 048
     Dates: start: 20180417
  12. REMODULIN [Suspect]
     Active Substance: TREPROSTINIL
     Dosage: 0.0235 ?G/KG, CONTINUING
     Route: 058
  13. REMODULIN [Suspect]
     Active Substance: TREPROSTINIL
     Dosage: 0.161 ?G/KG, CONTINUING
     Route: 058
  14. LASIX [Concomitant]
     Active Substance: FUROSEMIDE
     Indication: RIGHT VENTRICULAR FAILURE
     Dosage: UNK
     Route: 048
  15. TEPRENONE [Concomitant]
     Active Substance: TEPRENONE
     Indication: PRODUCT USED FOR UNKNOWN INDICATION
     Dosage: UNK
     Route: 048
  16. NAUZELIN [Concomitant]
     Active Substance: DOMPERIDONE
     Indication: PRODUCT USED FOR UNKNOWN INDICATION
     Dosage: UNK
     Route: 048
     Dates: start: 20170329, end: 20170331
  17. FERROUS SULFATE. [Concomitant]
     Active Substance: FERROUS SULFATE
     Indication: IRON DEFICIENCY ANAEMIA
     Dosage: UNK
     Route: 048
     Dates: start: 20171017, end: 20180108
  18. REMODULIN [Suspect]
     Active Substance: TREPROSTINIL
     Dosage: 0.01125 ?G/KG, CONTINUING
     Route: 058
  19. TADALAFIL. [Concomitant]
     Active Substance: TADALAFIL
     Indication: PULMONARY ARTERIAL HYPERTENSION
     Dosage: UNK
     Route: 048
     Dates: start: 201409
  20. CANDESARTAN. [Concomitant]
     Active Substance: CANDESARTAN
     Indication: HYPERTENSION
     Dosage: UNK
     Route: 048
  21. URSO [Concomitant]
     Active Substance: URSODIOL
     Indication: HEPATIC STEATOSIS
     Dosage: UNK
     Route: 048
     Dates: start: 20150519, end: 20171016
  22. MIYA-BM [Concomitant]
     Active Substance: CLOSTRIDIUM BUTYRICUM SPORES STRAIN M-55
     Indication: PRODUCT USED FOR UNKNOWN INDICATION
     Dosage: UNK
     Route: 048
     Dates: start: 20180331
  23. REMODULIN [Suspect]
     Active Substance: TREPROSTINIL
     Dosage: 0.01 ?G/KG, CONTINUING
     Route: 058
  24. REMODULIN [Suspect]
     Active Substance: TREPROSTINIL
     Dosage: 0.012 ?G/KG/MIN, CONTINUING
     Route: 058
  25. AMBRISENTAN [Concomitant]
     Active Substance: AMBRISENTAN
     Indication: PULMONARY ARTERIAL HYPERTENSION
     Dosage: UNK
     Route: 048
     Dates: start: 2014
  26. ALDACTONE A [Concomitant]
     Active Substance: SPIRONOLACTONE
     Indication: RIGHT VENTRICULAR FAILURE
     Dosage: UNK
     Route: 048
  27. FEBURIC [Concomitant]
     Active Substance: FEBUXOSTAT
     Indication: HYPERURICAEMIA
     Dosage: UNK
     Route: 048
  28. LANIRAPID [Concomitant]
     Active Substance: METILDIGOXIN
     Indication: ATRIAL FIBRILLATION
     Dosage: UNK
     Route: 048
  29. BIOFERMIN R [Concomitant]
     Active Substance: DIETARY SUPPLEMENT\PROBIOTICS
     Indication: PRODUCT USED FOR UNKNOWN INDICATION
     Dosage: UNK
     Route: 048
     Dates: start: 20170329, end: 20170331
  30. REMODULIN [Suspect]
     Active Substance: TREPROSTINIL
     Indication: PULMONARY ARTERIAL HYPERTENSION
     Dosage: 0.008 ?G/KG/MIN, CONTINUING
     Route: 058
  31. REMODULIN [Suspect]
     Active Substance: TREPROSTINIL
     Dosage: 0.197 ?G/KG, CONTINUING
     Route: 058
  32. ADCIRCA [Concomitant]
     Active Substance: TADALAFIL
     Dosage: UNK
     Route: 048
     Dates: start: 20140922
  33. MEXITIL [Concomitant]
     Active Substance: MEXILETINE HYDROCHLORIDE
     Indication: ATRIAL FIBRILLATION
     Dosage: UNK
     Route: 048

REACTIONS (16)
  - Infusion site induration [Not Recovered/Not Resolved]
  - Gastroenteritis [Recovered/Resolved]
  - Diarrhoea [Recovering/Resolving]
  - Infusion site infection [Recovering/Resolving]
  - Infusion site pruritus [Recovering/Resolving]
  - Blood pressure decreased [Recovering/Resolving]
  - Flushing [Unknown]
  - Infusion site discolouration [Unknown]
  - Injection site rash [Unknown]
  - Pneumonia [Recovering/Resolving]
  - Infusion site haemorrhage [Unknown]
  - Infusion site pain [Not Recovered/Not Resolved]
  - Infusion site swelling [Not Recovered/Not Resolved]
  - Infusion site erythema [Not Recovered/Not Resolved]
  - Gastroenteritis [Recovered/Resolved]
  - Dermatitis contact [Unknown]

NARRATIVE: CASE EVENT DATE: 20150516
